FAERS Safety Report 10206600 (Version 1)
Quarter: 2014Q2

REPORT INFORMATION
  Report Type: Spontaneous
  Country: US (occurrence: US)
  Receive Date: 20140530
  Receipt Date: 20140530
  Transmission Date: 20141212
  Serious: No
  Sender: FDA-Public Use
  Company Number: US-GLAXOSMITHKLINE-A1054928A

PATIENT
  Age: 54 Year
  Sex: Female

DRUGS (3)
  1. FLOLAN [Suspect]
     Indication: PRODUCT USED FOR UNKNOWN INDICATION
     Route: 065
  2. LETAIRIS [Suspect]
     Indication: PRODUCT USED FOR UNKNOWN INDICATION
     Dosage: 10MG PER DAY
     Route: 048
     Dates: start: 20131023
  3. REVATIO [Concomitant]

REACTIONS (2)
  - Cardiac output increased [Unknown]
  - Sinus disorder [Unknown]
